FAERS Safety Report 9729826 (Version 1)
Quarter: 2013Q4

REPORT INFORMATION
  Report Type: Report from Study
  Country: NL (occurrence: NL)
  Receive Date: 20131204
  Receipt Date: 20131204
  Transmission Date: 20140711
  Serious: Yes (Death, Hospitalization)
  Sender: FDA-Public Use
  Company Number: NL-TEVA-447968ISR

PATIENT
  Age: 54 Year
  Sex: Female

DRUGS (6)
  1. MYOCET [Suspect]
     Dosage: 0 MILLIGRAM DAILY;
  2. PACLITAXEL [Suspect]
     Indication: BREAST CANCER METASTATIC
     Dosage: 156 MILLIGRAM DAILY;
     Route: 042
     Dates: start: 20130411, end: 20130724
  3. BEVACIZUMAB [Suspect]
     Indication: BREAST CANCER METASTATIC
     Dosage: 1075 MILLIGRAM DAILY;
     Route: 042
     Dates: start: 20130411, end: 20131106
  4. ZOMETA [Concomitant]
     Dosage: 4 MILLIGRAM DAILY;
     Dates: start: 20130425
  5. AMLODIPINE [Concomitant]
     Dosage: 10 MILLIGRAM DAILY;
     Dates: start: 20130528
  6. PANTOZOL [Concomitant]
     Dosage: 20 MILLIGRAM DAILY;
     Dates: start: 20130111

REACTIONS (5)
  - Disease progression [Fatal]
  - Jaundice [Unknown]
  - Abdominal discomfort [Unknown]
  - Hepatic enzyme increased [Unknown]
  - Hepatitis [Unknown]
